FAERS Safety Report 7010139-2 (Version None)
Quarter: 2010Q3

REPORT INFORMATION
  Report Type: 
  Country: None (occurrence: None)
  Receive Date: 20100923
  Receipt Date: 20100915
  Transmission Date: 20110219
  Serious: Yes (Other)
  Sender: FDA-Public Use
  Company Number: US-PFIZER INC-2010105254

PATIENT
  Sex: Female
  Weight: 49.433 kg

DRUGS (3)
  1. CHANTIX [Suspect]
     Indication: SMOKING CESSATION THERAPY
     Dosage: 0.5 MG, DAILY
     Route: 048
     Dates: start: 20100801, end: 20100901
  2. EFFEXOR XR [Concomitant]
     Indication: DEPRESSION
     Dosage: UNK
  3. TRAZODONE [Concomitant]
     Indication: INSOMNIA
     Dosage: UNK

REACTIONS (4)
  - ANXIETY [None]
  - BIPOLAR DISORDER [None]
  - CONFUSIONAL STATE [None]
  - SKIN EXFOLIATION [None]
